FAERS Safety Report 5837931-1 (Version None)
Quarter: 2008Q3

REPORT INFORMATION
  Report Type: 
  Country: None (occurrence: None)
  Receive Date: 20080808
  Receipt Date: 20080804
  Transmission Date: 20090109
  Serious: Yes (Hospitalization)
  Sender: FDA-Public Use
  Company Number: JP-BRISTOL-MYERS SQUIBB COMPANY-14283733

PATIENT
  Age: 53 Year
  Sex: Female

DRUGS (2)
  1. TAXOL [Suspect]
     Indication: CERVIX CARCINOMA
     Route: 041
     Dates: start: 20051201
  2. PARAPLATIN [Suspect]
     Indication: CERVIX CARCINOMA
     Route: 041
     Dates: start: 20051201

REACTIONS (1)
  - SCLERODERMA [None]
